FAERS Safety Report 18536829 (Version 1)
Quarter: 2020Q4

REPORT INFORMATION
  Report Type: Spontaneous
  Country: CN (occurrence: CN)
  Receive Date: 20201124
  Receipt Date: 20201124
  Transmission Date: 20210114
  Serious: Yes (Death, Life-Threatening, Hospitalization, Other)
  Sender: FDA-Public Use
  Company Number: CN-ALKEM LABORATORIES LIMITED-CN-ALKEM-2020-08099

PATIENT
  Age: 56 Year
  Sex: Male

DRUGS (7)
  1. MOXIFLOXACIN. [Suspect]
     Active Substance: MOXIFLOXACIN
     Dosage: 400 MILLIGRAM, QD
     Route: 048
  2. MOXIFLOXACIN. [Suspect]
     Active Substance: MOXIFLOXACIN
     Indication: PNEUMONIA LEGIONELLA
     Dosage: 400 MILLIGRAM, QD
     Route: 042
  3. AZITHROMYCIN ANHYDROUS. [Suspect]
     Active Substance: AZITHROMYCIN ANHYDROUS
     Indication: PNEUMONIA LEGIONELLA
     Dosage: 500 MILLIGRAM, QD
     Route: 048
  4. MYCOPHENOLATE MOFETIL. [Suspect]
     Active Substance: MYCOPHENOLATE MOFETIL
     Indication: IMMUNOSUPPRESSANT DRUG THERAPY
     Dosage: 0.25 MILLIGRAM, BID
     Route: 065
     Dates: start: 200006
  5. PREDNISONE. [Suspect]
     Active Substance: PREDNISONE
     Indication: IMMUNOSUPPRESSANT DRUG THERAPY
     Dosage: 10 MILLIGRAM, QD
     Route: 065
     Dates: start: 200006
  6. TACROLIMUS. [Suspect]
     Active Substance: TACROLIMUS
     Indication: IMMUNOSUPPRESSANT DRUG THERAPY
     Dosage: 1 MILLIGRAM, BID
     Route: 065
     Dates: start: 200006
  7. CIPROFLOXACIN. [Suspect]
     Active Substance: CIPROFLOXACIN
     Indication: PNEUMONIA LEGIONELLA
     Dosage: UNK
     Route: 065
     Dates: start: 2019

REACTIONS (5)
  - Electrocardiogram QT prolonged [Unknown]
  - Epilepsy [Unknown]
  - Pneumonia legionella [Fatal]
  - Cardiac arrest [Fatal]
  - Arrhythmia [Fatal]

NARRATIVE: CASE EVENT DATE: 2019
